FAERS Safety Report 15980137 (Version 1)
Quarter: 2019Q1

REPORT INFORMATION
  Report Type: Spontaneous
  Country: GB (occurrence: GB)
  Receive Date: 20190219
  Receipt Date: 20190219
  Transmission Date: 20190418
  Serious: Yes (Other)
  Sender: FDA-Public Use
  Company Number: GB-ASTRAZENECA-2019SE24575

PATIENT
  Age: 62 Year

DRUGS (9)
  1. RANITIDINE. [Concomitant]
     Active Substance: RANITIDINE
  2. LORATADINE. [Concomitant]
     Active Substance: LORATADINE
  3. LORAZEPAM. [Concomitant]
     Active Substance: LORAZEPAM
  4. ATORVASTATIN [Concomitant]
     Active Substance: ATORVASTATIN
  5. NAPROXEN. [Suspect]
     Active Substance: NAPROXEN
     Route: 065
  6. ESOMEPRAZOLE. [Suspect]
     Active Substance: ESOMEPRAZOLE MAGNESIUM
     Route: 048
  7. HALOPERIDOL. [Concomitant]
     Active Substance: HALOPERIDOL
  8. MIRTAZAPINE. [Suspect]
     Active Substance: MIRTAZAPINE
     Route: 065
  9. CLOPIDOGREL [Concomitant]
     Active Substance: CLOPIDOGREL BISULFATE

REACTIONS (3)
  - Hyponatraemia [Unknown]
  - Seizure [Recovered/Resolved]
  - Pituitary tumour benign [Unknown]

NARRATIVE: CASE EVENT DATE: 20180627
